FAERS Safety Report 15274285 (Version 1)
Quarter: 2018Q3

REPORT INFORMATION
  Report Type: Spontaneous
  Country: US (occurrence: US)
  Receive Date: 20180814
  Receipt Date: 20180814
  Transmission Date: 20181010
  Serious: No
  Sender: FDA-Public Use
  Company Number: US-AUROBINDO-AUR-APU-2018-032159

PATIENT
  Age: 81 Year
  Sex: Female

DRUGS (4)
  1. ELIQUIS [Concomitant]
     Active Substance: APIXABAN
     Indication: HYPERTENSION
     Route: 065
  2. LISINOPRIL. [Concomitant]
     Active Substance: LISINOPRIL
     Indication: HYPERTENSION
     Route: 065
  3. LEVOFLOXACIN TABLETS 500MG [Suspect]
     Active Substance: LEVOFLOXACIN
     Indication: PNEUMONIA
     Dosage: 02 TABLETS PER DAY.
     Route: 065
     Dates: start: 20180606, end: 20180614
  4. ATENOLOL. [Concomitant]
     Active Substance: ATENOLOL
     Indication: HYPERTENSION
     Route: 065

REACTIONS (4)
  - Nausea [Unknown]
  - Chills [Unknown]
  - Lip swelling [Unknown]
  - Mouth swelling [Unknown]

NARRATIVE: CASE EVENT DATE: 20180611
